FAERS Safety Report 7220684-2 (Version None)
Quarter: 2011Q1

REPORT INFORMATION
  Report Type: 
  Country: None (occurrence: None)
  Receive Date: 20110111
  Receipt Date: 20110105
  Transmission Date: 20110831
  Serious: Yes (Hospitalization, Other)
  Sender: FDA-Public Use
  Company Number: US-RB-020262-11

PATIENT
  Age: 35 Year
  Sex: Female

DRUGS (1)
  1. SUBOXONE [Suspect]
     Indication: PRODUCT USED FOR UNKNOWN INDICATION
     Dosage: DOSING INFORMATION UNKNOWN
     Route: 065

REACTIONS (5)
  - CHOLELITHIASIS [None]
  - INTENTIONAL DRUG MISUSE [None]
  - ROAD TRAFFIC ACCIDENT [None]
  - ABDOMINAL PAIN UPPER [None]
  - SUBSTANCE ABUSE [None]
